FAERS Safety Report 6233003-5 (Version None)
Quarter: 2009Q2

REPORT INFORMATION
  Report Type: 
  Country: None (occurrence: None)
  Receive Date: 20090617
  Receipt Date: 20090610
  Transmission Date: 20091009
  Serious: Yes (Hospitalization, Disabling, Other)
  Sender: FDA-Public Use
  Company Number: A0790127A

PATIENT
  Sex: Male

DRUGS (5)
  1. LAMICTAL [Suspect]
     Indication: DRUG USE FOR UNKNOWN INDICATION
     Dosage: 200MG TWICE PER DAY
     Route: 048
     Dates: start: 20090201, end: 20090304
  2. VALPROIC ACID SYRUP [Concomitant]
  3. RISPERDAL [Concomitant]
  4. THORAZINE [Concomitant]
  5. CELEXA [Concomitant]

REACTIONS (6)
  - ABASIA [None]
  - AKINAESTHESIA [None]
  - DRUG ADMINISTRATION ERROR [None]
  - LETHARGY [None]
  - PROTRUSION TONGUE [None]
  - RASH [None]
